FAERS Safety Report 13166868 (Version 3)
Quarter: 2017Q1

REPORT INFORMATION
  Report Type: Report from Study
  Country: US (occurrence: US)
  Receive Date: 20170131
  Receipt Date: 20170206
  Transmission Date: 20170428
  Serious: Yes (Hospitalization, Other)
  Sender: FDA-Public Use
  Company Number: US-BIOGEN-2017BI00349856

PATIENT
  Age: 59 Year
  Sex: Female

DRUGS (2)
  1. TYSABRI [Suspect]
     Active Substance: NATALIZUMAB
     Dosage: INFUSED OVER 1 HOUR
     Route: 042
     Dates: start: 201403
  2. TYSABRI [Suspect]
     Active Substance: NATALIZUMAB
     Indication: MULTIPLE SCLEROSIS
     Dosage: INFUSED OVER 1 HOUR
     Route: 042
     Dates: start: 20130225

REACTIONS (10)
  - Mental impairment [Recovered/Resolved]
  - Pyrexia [Recovered/Resolved]
  - Femur fracture [Recovered/Resolved with Sequelae]
  - Speech disorder [Recovered/Resolved]
  - Hypotension [Recovered/Resolved]
  - Haematoma [Recovered/Resolved]
  - Hip fracture [Recovered/Resolved]
  - Body temperature decreased [Recovered/Resolved]
  - Fall [Recovered/Resolved]
  - Nosocomial infection [Recovered/Resolved]

NARRATIVE: CASE EVENT DATE: 201612
